FAERS Safety Report 10627709 (Version 7)
Quarter: 2015Q3

REPORT INFORMATION
  Report Type: Report from Study
  Country: BR (occurrence: BR)
  Receive Date: 20141205
  Receipt Date: 20150817
  Transmission Date: 20151125
  Serious: Yes (Death, Hospitalization, Other)
  Sender: FDA-Public Use
  Company Number: BR-ROCHE-1286332

PATIENT
  Age: 73 Year
  Sex: Female
  Weight: 76 kg

DRUGS (13)
  1. ACTEMRA [Suspect]
     Active Substance: TOCILIZUMAB
     Route: 042
     Dates: start: 20101113, end: 20150531
  2. ATENOLOL. [Concomitant]
     Active Substance: ATENOLOL
  3. REUQUINOL [Concomitant]
     Active Substance: HYDROXYCHLOROQUINE SULFATE
     Indication: RHEUMATOID ARTHRITIS
     Route: 048
     Dates: start: 20140412, end: 201505
  4. DIOVAN [Concomitant]
     Active Substance: VALSARTAN
  5. SINVASCOR [Concomitant]
     Active Substance: SIMVASTATIN
     Indication: DYSLIPIDAEMIA
     Route: 048
     Dates: start: 20070312, end: 201505
  6. ACTEMRA [Suspect]
     Active Substance: TOCILIZUMAB
     Route: 042
     Dates: start: 201405, end: 201408
  7. VITAMIN C [Concomitant]
     Active Substance: ASCORBIC ACID
  8. ACTEMRA [Suspect]
     Active Substance: TOCILIZUMAB
     Indication: RHEUMATOID ARTHRITIS
     Route: 042
     Dates: start: 20100601, end: 20140801
  9. METFORMIN [Concomitant]
     Active Substance: METFORMIN HYDROCHLORIDE
     Indication: DIABETES MELLITUS
     Route: 048
     Dates: start: 20070312, end: 201505
  10. ACTEMRA [Suspect]
     Active Substance: TOCILIZUMAB
     Route: 042
     Dates: start: 201312
  11. ACTEMRA [Suspect]
     Active Substance: TOCILIZUMAB
     Route: 042
     Dates: start: 201401
  12. METHOTREXATE [Concomitant]
     Active Substance: METHOTREXATE
     Indication: RHEUMATOID ARTHRITIS
     Route: 048
     Dates: start: 20070420, end: 20140412
  13. INSULIN [Concomitant]
     Active Substance: INSULIN NOS
     Indication: DIABETES MELLITUS
     Route: 058
     Dates: start: 20130314, end: 201505

REACTIONS (15)
  - Respiratory tract infection [Recovered/Resolved]
  - Arthropathy [Unknown]
  - Obesity [Fatal]
  - Postoperative wound infection [Unknown]
  - Sleep apnoea syndrome [Not Recovered/Not Resolved]
  - Diabetes mellitus [Fatal]
  - Hypertensive cardiomyopathy [Fatal]
  - Pulmonary oedema [Fatal]
  - Arteriosclerosis coronary artery [Fatal]
  - Depression [Unknown]
  - Cardiac failure congestive [Fatal]
  - Cardiac failure [Fatal]
  - Congestive cardiomyopathy [Fatal]
  - Cyanosis [Unknown]
  - Rheumatoid arthritis [Not Recovered/Not Resolved]

NARRATIVE: CASE EVENT DATE: 20130514
